APPROVED DRUG PRODUCT: PRAMOSONE
Active Ingredient: HYDROCORTISONE ACETATE; PRAMOXINE HYDROCHLORIDE
Strength: 0.5%;1%
Dosage Form/Route: CREAM;TOPICAL
Application: A083778 | Product #001
Applicant: LEGACY PHARMA INC
Approved: Approved Prior to Jan 1, 1982 | RLD: No | RS: No | Type: RX